FAERS Safety Report 9283841 (Version 3)
Quarter: 2013Q3

REPORT INFORMATION
  Report Type: Report from Study
  Country: FR (occurrence: FR)
  Receive Date: 20130510
  Receipt Date: 20130924
  Transmission Date: 20140515
  Serious: Yes (Hospitalization)
  Sender: FDA-Public Use
  Company Number: FR-GLAXOSMITHKLINE-B0890181A

PATIENT
  Age: 58 Year
  Sex: Female
  Weight: 43 kg

DRUGS (8)
  1. OFATUMUMAB [Suspect]
     Indication: B-CELL LYMPHOMA
     Route: 042
     Dates: start: 20121127
  2. BENDAMUSTINE [Suspect]
     Indication: B-CELL LYMPHOMA
     Route: 042
     Dates: start: 20121205
  3. SOLUMEDROL [Suspect]
     Indication: B-CELL LYMPHOMA
     Route: 042
     Dates: start: 20121127
  4. NEORECORMON [Concomitant]
     Dosage: 3000U WEEKLY
     Route: 058
  5. COVERSYL [Concomitant]
     Dosage: 2MG PER DAY
     Route: 048
     Dates: start: 20121127
  6. BACTRIM [Concomitant]
     Route: 048
     Dates: start: 20121127
  7. GRANOCYTE [Concomitant]
     Route: 058
     Dates: start: 20121209, end: 20121215
  8. LEDERFOLINE [Concomitant]
     Route: 048
     Dates: start: 20121127

REACTIONS (3)
  - Febrile neutropenia [Recovered/Resolved]
  - Escherichia sepsis [Recovered/Resolved]
  - Pyelonephritis [Recovered/Resolved]
